FAERS Safety Report 23582092 (Version 1)
Quarter: 2024Q1

REPORT INFORMATION
  Report Type: Spontaneous
  Country: US (occurrence: US)
  Receive Date: 20240229
  Receipt Date: 20240229
  Transmission Date: 20240410
  Serious: No
  Sender: FDA-Public Use
  Company Number: US-SA-SAC20240223001255

PATIENT
  Sex: Male
  Weight: 24.8 kg

DRUGS (2)
  1. DUPIXENT [Suspect]
     Active Substance: DUPILUMAB
     Indication: Dermatitis atopic
     Dosage: 300 MG, Q4W
     Route: 058
  2. AMOXICILLIN [Suspect]
     Active Substance: AMOXICILLIN

REACTIONS (2)
  - Drug hypersensitivity [Unknown]
  - Rash [Unknown]
